FAERS Safety Report 20630341 (Version 1)
Quarter: 2022Q1

REPORT INFORMATION
  Report Type: Spontaneous
  Country: SE (occurrence: SE)
  Receive Date: 20220324
  Receipt Date: 20220324
  Transmission Date: 20220423
  Serious: Yes (Life-Threatening, Hospitalization)
  Sender: FDA-Public Use
  Company Number: None

PATIENT
  Age: 65 Year
  Sex: Female

DRUGS (1)
  1. OXAZEPAM [Suspect]
     Active Substance: OXAZEPAM
     Route: 065

REACTIONS (1)
  - Hypercapnia [Recovering/Resolving]

NARRATIVE: CASE EVENT DATE: 20220215
